FAERS Safety Report 6545695-1 (Version None)
Quarter: 2010Q1

REPORT INFORMATION
  Report Type: 
  Country: None (occurrence: None)
  Receive Date: 20100121
  Receipt Date: 20100112
  Transmission Date: 20100710
  Serious: Yes (Hospitalization)
  Sender: FDA-Public Use
  Company Number: PHHO2010CA00486

PATIENT
  Sex: Female
  Weight: 52 kg

DRUGS (1)
  1. AFINITOR [Suspect]
     Indication: METASTATIC RENAL CELL CARCINOMA
     Dosage: 10 MG, QD
     Route: 048
     Dates: start: 20090903, end: 20091224

REACTIONS (14)
  - ACUTE PULMONARY OEDEMA [None]
  - AORTIC ARTERIOSCLEROSIS [None]
  - CARDIAC FAILURE [None]
  - CHEST X-RAY ABNORMAL [None]
  - CORONARY ARTERY DISEASE [None]
  - HYPOTENSION [None]
  - ISCHAEMIA [None]
  - LEFT VENTRICULAR FAILURE [None]
  - LUNG DISORDER [None]
  - MITRAL VALVE CALCIFICATION [None]
  - MYOCARDIAL INFARCTION [None]
  - PLEURAL EFFUSION [None]
  - PNEUMONITIS [None]
  - PULMONARY OEDEMA [None]
